FAERS Safety Report 14711789 (Version 3)
Quarter: 2018Q2

REPORT INFORMATION
  Report Type: Report from Study
  Country: US (occurrence: US)
  Receive Date: 20180403
  Receipt Date: 20180426
  Transmission Date: 20180711
  Serious: No
  Sender: FDA-Public Use
  Company Number: US-009507513-1804USA000571

PATIENT
  Age: 26 Year
  Sex: Female
  Weight: 114.74 kg

DRUGS (2)
  1. IMPLANON [Suspect]
     Active Substance: ETONOGESTREL
     Dosage: 1 DF, ONE ROD PER THREE YEARS, 68MG
     Route: 059
     Dates: start: 20180319, end: 20180323
  2. IMPLANON [Suspect]
     Active Substance: ETONOGESTREL
     Dosage: 1 DF,  68MG
     Route: 059
     Dates: start: 20180323

REACTIONS (3)
  - Pain in extremity [Recovered/Resolved]
  - Device expulsion [Recovered/Resolved]
  - No adverse event [Unknown]

NARRATIVE: CASE EVENT DATE: 20180323
